FAERS Safety Report 25882749 (Version 1)
Quarter: 2025Q4

REPORT INFORMATION
  Report Type: Spontaneous
  Country: GB (occurrence: GB)
  Receive Date: 20251006
  Receipt Date: 20251006
  Transmission Date: 20260117
  Serious: Yes (Other)
  Sender: TORRENT PHARMA INC.
  Company Number: GB-TORRENT-00042964

PATIENT
  Age: 43 Year
  Sex: Female

DRUGS (1)
  1. SILDENAFIL [Suspect]
     Active Substance: SILDENAFIL
     Indication: Sarcoidosis
     Dosage: UNKNOWN
     Route: 065

REACTIONS (1)
  - Whipple^s disease [Unknown]
